FAERS Safety Report 8731455 (Version 2)
Quarter: 2012Q4

REPORT INFORMATION
  Report Type: 
  Country: US (occurrence: US)
  Receive Date: 20120820
  Receipt Date: 20120921
  Transmission Date: 20130627
  Serious: Yes (Death, Hospitalization)
  Sender: FDA-Public Use
  Company Number: US-CELGENEUS-163-21880-12073173

PATIENT
  Age: 52 None
  Sex: Male

DRUGS (1)
  1. REVLIMID [Suspect]
     Indication: LYMPHOMA NOS
     Dosage: 15 Milligram
     Route: 048
     Dates: start: 20120530, end: 201208

REACTIONS (1)
  - Lymphoma [Fatal]
